FAERS Safety Report 19534237 (Version 9)
Quarter: 2022Q1

REPORT INFORMATION
  Report Type: Report from Study
  Country: GB (occurrence: GB)
  Receive Date: 20210713
  Receipt Date: 20220317
  Transmission Date: 20220423
  Serious: Yes (Hospitalization, Other)
  Sender: FDA-Public Use
  Company Number: None

PATIENT
  Age: 8 Year
  Sex: Male
  Weight: 20.2 kg

DRUGS (32)
  1. TOPOTECAN [Suspect]
     Active Substance: TOPOTECAN HYDROCHLORIDE
     Indication: Neoplasm malignant
     Dosage: 0.64 MG (1 IN 1 DAY)
     Route: 042
     Dates: start: 20210401, end: 20210405
  2. CYCLOPHOSPHAMIDE [Suspect]
     Active Substance: CYCLOPHOSPHAMIDE
     Indication: Product used for unknown indication
     Dosage: 210 MG (1 IN 1 DAY)
     Route: 042
     Dates: start: 20210504
  3. VENETOCLAX [Suspect]
     Active Substance: VENETOCLAX
     Indication: Neoplasm malignant
     Dosage: 350 MG (350 MG- 2) (8 DAYS)
     Route: 048
     Dates: start: 20210330, end: 20210407
  4. ONDANSETRON [Concomitant]
     Active Substance: ONDANSETRON
     Indication: Antiemetic supportive care
     Dosage: 12 MG (4 MG,3 IN 1 DAY)
     Route: 042
     Dates: start: 20210330
  5. TINZAPARIN SODIUM [Concomitant]
     Active Substance: TINZAPARIN SODIUM
     Indication: Anticoagulant therapy
     Dosage: 6000 IU (1 DAY)
     Route: 058
     Dates: start: 20210526
  6. ALLOPURINOL [Concomitant]
     Active Substance: ALLOPURINOL
     Indication: Tumour lysis syndrome
     Dosage: 240 MG (1 IN 1 DAY)
     Route: 048
     Dates: start: 20210330, end: 20210404
  7. CHLORPHENIRAMINE MALEATE [Concomitant]
     Active Substance: CHLORPHENIRAMINE MALEATE
     Indication: Allergic transfusion reaction
     Dosage: 4 MG (AS REQUIRED)
     Route: 048
     Dates: start: 20210601
  8. CHLORPHENIRAMINE MALEATE [Concomitant]
     Active Substance: CHLORPHENIRAMINE MALEATE
     Indication: Hypersensitivity
     Dosage: 4 MG (AS REQUIRED)
     Route: 042
     Dates: start: 20210329
  9. CHOLECALCIFEROL [Concomitant]
     Active Substance: CHOLECALCIFEROL
     Indication: Vitamin supplementation
     Dosage: UNK (1 CAPSULE,3 IN 1 WEEK)
     Route: 048
     Dates: start: 20210331
  10. COTRIMOXAZOLE [Concomitant]
     Active Substance: SULFAMETHOXAZOLE\TRIMETHOPRIM
     Indication: Antibiotic prophylaxis
     Dosage: 360 MG (1 IN 1 DAY)
     Route: 048
     Dates: start: 20210331
  11. CYCLIZINE [Concomitant]
     Active Substance: CYCLIZINE
     Indication: Antiemetic supportive care
     Dosage: 75 MG (25 MG,3 IN 1 DAY)
     Route: 042
     Dates: start: 20210330
  12. CYCLIZINE [Concomitant]
     Active Substance: CYCLIZINE
     Indication: Antiemetic supportive care
     Dosage: 75 MG (25 MG,3 IN 1 DAY)
     Route: 048
     Dates: start: 20210602
  13. DEXAMETHASONE [Concomitant]
     Active Substance: DEXAMETHASONE
     Indication: Analgesic therapy
     Dosage: 4 MG (2 MG,2 IN 1 DAY)
     Route: 042
     Dates: start: 20210406
  14. DEXAMETHASONE [Concomitant]
     Active Substance: DEXAMETHASONE
     Indication: Chemotherapy side effect prophylaxis
     Dosage: 4 MG, QD
     Route: 042
     Dates: start: 20210531, end: 20210606
  15. DOCUSATE SODIUM [Concomitant]
     Active Substance: DOCUSATE SODIUM
     Indication: Constipation prophylaxis
     Dosage: 300 MG (100 MG, 3 IN 1 DAY)
     Route: 048
     Dates: start: 20210508
  16. GABAPENTIN [Concomitant]
     Active Substance: GABAPENTIN
     Indication: Pain
     Dosage: 600 MG (200 MG, 3 IN 1 DAY)
     Route: 048
     Dates: start: 20210329
  17. HEPARIN [Concomitant]
     Active Substance: HEPARIN SODIUM
     Indication: Product used for unknown indication
     Dosage: 10 UNITS/ML (3 IN 1 DAY)
     Route: 042
     Dates: start: 20210329
  18. LEVOMEPROMAZINE [Concomitant]
     Active Substance: LEVOMEPROMAZINE
     Indication: Antiemetic supportive care
     Dosage: 2.2 MG (1.1 MG, 2 IN 1 DAY)
     Route: 042
     Dates: start: 20210601
  19. LIPEGFILGRASTIM [Concomitant]
     Active Substance: LIPEGFILGRASTIM
     Indication: Blood disorder prophylaxis
     Dosage: 2.5 MG (5 MG, 3 IN 1 DAY)
     Route: 058
     Dates: start: 20210509, end: 20210510
  20. METOCLOPRAMIDE [Concomitant]
     Active Substance: METOCLOPRAMIDE
     Indication: Nausea
     Dosage: 15 MG (5 MG, 3 IN 1 DAY)
     Route: 048
     Dates: start: 20210508
  21. MIDAZOLAM [Concomitant]
     Active Substance: MIDAZOLAM
     Indication: Pain
     Dosage: 2 MG (AS REQUIRED)
     Route: 048
     Dates: start: 20210321
  22. MORPHINE [Concomitant]
     Active Substance: MORPHINE
     Indication: Pain
     Dosage: 10 MG (AS REQUIRED)
     Route: 048
     Dates: start: 20210509
  23. MOVICOL [Concomitant]
     Active Substance: POLYETHYLENE GLYCOL 3350\POTASSIUM CHLORIDE\SODIUM BICARBONATE\SODIUM CHLORIDE
     Indication: Constipation
     Dosage: UNK (1-2 SACHETS AS REQUIRED)
     Route: 048
     Dates: start: 20210517
  24. SODIUM CHLORIDE [Concomitant]
     Active Substance: SODIUM CHLORIDE
     Indication: Tumour lysis syndrome
     Dosage: UNK (375 ML)
     Route: 042
     Dates: start: 20210330, end: 20210407
  25. OMEPRAZOLE [Concomitant]
     Active Substance: OMEPRAZOLE
     Indication: Dyspepsia
     Dosage: 20 MG (20 MG,1 IN 1 DAY)
     Route: 048
     Dates: start: 20210310
  26. SCOPOLAMINE [Concomitant]
     Active Substance: SCOPOLAMINE
     Indication: Vomiting
     Dosage: 1 MG, PRN
     Route: 061
     Dates: start: 20210601
  27. MORPHINE [Concomitant]
     Active Substance: MORPHINE
     Dosage: 10 MG, PRN
     Route: 048
     Dates: start: 20210806
  28. CIPROFLOXACIN [Concomitant]
     Active Substance: CIPROFLOXACIN
     Indication: Soft tissue infection
     Dosage: 1000 MG, BID (500 MG, 2 IN 1 D)
     Route: 048
     Dates: start: 20210924
  29. LINEZOLID [Concomitant]
     Active Substance: LINEZOLID
     Indication: Soft tissue infection
     Dosage: 600 MG, TID (200 MG, 3 IN 1 D)
     Dates: start: 20210913
  30. ACETAMINOPHEN [Concomitant]
     Active Substance: ACETAMINOPHEN
     Indication: Pain prophylaxis
     Route: 048
     Dates: start: 20210324
  31. PIPERACILLIN SODIUM\TAZOBACTAM SODIUM [Concomitant]
     Active Substance: PIPERACILLIN SODIUM\TAZOBACTAM SODIUM
     Indication: Infection
     Dosage: 1.8 G, QD
     Route: 042
     Dates: start: 20210806
  32. TEICOPLANIN [Concomitant]
     Active Substance: TEICOPLANIN
     Indication: Infection
     Dosage: 235 MG
     Route: 042
     Dates: start: 20210808

REACTIONS (11)
  - Pyrexia [Not Recovered/Not Resolved]
  - Cellulitis [Unknown]
  - White blood cell count decreased [Unknown]
  - Oropharyngeal pain [Unknown]
  - Ear pain [Unknown]
  - Product use issue [Unknown]
  - Vomiting [Unknown]
  - Febrile neutropenia [Not Recovered/Not Resolved]
  - Nodule [Unknown]
  - Palpitations [Unknown]
  - Groin pain [Unknown]

NARRATIVE: CASE EVENT DATE: 20210609
